FAERS Safety Report 12546478 (Version 1)
Quarter: 2016Q3

REPORT INFORMATION
  Report Type: Spontaneous
  Country: GB (occurrence: GB)
  Receive Date: 20160711
  Receipt Date: 20160711
  Transmission Date: 20161109
  Serious: Yes (Other)
  Sender: FDA-Public Use
  Company Number: PHHY2016GB090765

PATIENT
  Age: 58 Year
  Sex: Female
  Weight: 64.41 kg

DRUGS (2)
  1. BETAHISTINE [Concomitant]
     Active Substance: BETAHISTINE
     Indication: PRODUCT USED FOR UNKNOWN INDICATION
     Route: 065
  2. CO-AMOXICLAV [Suspect]
     Active Substance: AMOXICILLIN\CLAVULANIC ACID
     Indication: SINUSITIS
     Dosage: 1 DF, TID
     Route: 048
     Dates: start: 20160621, end: 20160621

REACTIONS (4)
  - Pyrexia [Recovered/Resolved]
  - Vomiting [Recovering/Resolving]
  - Paraesthesia [Not Recovered/Not Resolved]
  - Feeling hot [Unknown]

NARRATIVE: CASE EVENT DATE: 20160621
